FAERS Safety Report 5002226-5 (Version None)
Quarter: 2006Q2

REPORT INFORMATION
  Report Type: 
  Country: None (occurrence: None)
  Receive Date: 20060510
  Receipt Date: 20060501
  Transmission Date: 20061013
  Serious: Yes (Death)
  Sender: FDA-Public Use
  Company Number: 163-20785-06040053

PATIENT
  Age: 73 Year
  Sex: Male

DRUGS (1)
  1. THALOMID [Suspect]
     Indication: GRAFT VERSUS HOST DISEASE
     Dosage: 100 MG DAILY ORAL
     Route: 048
     Dates: start: 20060217, end: 20060224

REACTIONS (2)
  - FALL [None]
  - HAEMORRHAGE INTRACRANIAL [None]
